FAERS Safety Report 13177240 (Version 1)
Quarter: 2017Q1

REPORT INFORMATION
  Report Type: Report from Study
  Country: US (occurrence: US)
  Receive Date: 20170201
  Receipt Date: 20170201
  Transmission Date: 20170428
  Serious: No
  Sender: FDA-Public Use
  Company Number: US-EXELIXIS-CABO-16007452

PATIENT
  Sex: Male

DRUGS (14)
  1. COMETRIQ [Suspect]
     Active Substance: CABOZANTINIB S-MALATE
     Indication: RENAL CANCER
     Dosage: 60 MG, QD
     Route: 048
     Dates: start: 20160420
  2. SYNTHROID [Concomitant]
     Active Substance: LEVOTHYROXINE SODIUM
  3. CALTRATE [Concomitant]
     Active Substance: CALCIUM CARBONATE
  4. FAMOTIDINE. [Concomitant]
     Active Substance: FAMOTIDINE
  5. FE TABS [Concomitant]
  6. LOSARTAN. [Concomitant]
     Active Substance: LOSARTAN
  7. CHERATUSSIN AC [Concomitant]
     Active Substance: CODEINE PHOSPHATE\GUAIFENESIN
  8. FISH OIL [Concomitant]
     Active Substance: FISH OIL
  9. MULTIVITAMINS [Concomitant]
     Active Substance: VITAMINS
  10. LEVETIRACETAM. [Concomitant]
     Active Substance: LEVETIRACETAM
  11. NASACORT ALLERGY 24HR [Concomitant]
     Active Substance: TRIAMCINOLONE ACETONIDE
  12. LIPITOR [Concomitant]
     Active Substance: ATORVASTATIN CALCIUM
  13. POTASSIUM [Concomitant]
     Active Substance: POTASSIUM
  14. TRIAMCINOLONE [Concomitant]
     Active Substance: TRIAMCINOLONE

REACTIONS (6)
  - Diarrhoea [Recovering/Resolving]
  - Haemoptysis [Recovering/Resolving]
  - Weight decreased [Unknown]
  - Fatigue [Unknown]
  - Off label use [Unknown]
  - Lung neoplasm [Unknown]
